FAERS Safety Report 8570830-3 (Version None)
Quarter: 2012Q3

REPORT INFORMATION
  Report Type: 
  Country: None (occurrence: None)
  Receive Date: 20120806
  Receipt Date: 20120727
  Transmission Date: 20120928
  Serious: Yes (Hospitalization)
  Sender: FDA-Public Use
  Company Number: IT-009507513-1203ITA00036

PATIENT

DRUGS (6)
  1. ATORVASTATIN CALCIUM [Concomitant]
     Dosage: 20 MG, UNK
     Route: 048
  2. DICLOFENAC SODIUM [Concomitant]
     Route: 047
  3. LOSAZID [Suspect]
     Dosage: 100-25
     Route: 048
     Dates: start: 20120220, end: 20120220
  4. ATENOLOL [Concomitant]
     Dosage: 50 MG, UNK
     Route: 048
  5. LEVOTHYROXINE SODIUM [Concomitant]
     Dosage: 125 ?G, UNK
     Route: 048
  6. VIGAMOX [Concomitant]
     Dosage: UNK MG/ML, UNK
     Route: 047

REACTIONS (2)
  - ACUTE RESPIRATORY FAILURE [None]
  - PULMONARY OEDEMA [None]
